FAERS Safety Report 20667321 (Version 2)
Quarter: 2022Q2

REPORT INFORMATION
  Report Type: Spontaneous
  Country: CZ (occurrence: CZ)
  Receive Date: 20220404
  Receipt Date: 20220408
  Transmission Date: 20220721
  Serious: No
  Sender: FDA-Public Use
  Company Number: CZ-002147023-NVSC2022CZ068299

PATIENT
  Sex: Female

DRUGS (4)
  1. DICLOFENAC [Suspect]
     Active Substance: DICLOFENAC
     Indication: Product used for unknown indication
     Dosage: UNK
     Route: 065
  2. CALCIUM\CHOLECALCIFEROL [Concomitant]
     Active Substance: CALCIUM\CHOLECALCIFEROL
     Indication: Product used for unknown indication
     Dosage: UNK, 0-0-1
     Route: 065
  3. RAPOXOL [Concomitant]
     Indication: Product used for unknown indication
     Dosage: 20 MG, (1 HOUR BEFORE MEALS)
     Route: 065
  4. VIGANTOL [COLECALCIFEROL-CHOLESTERIN] [Concomitant]
     Indication: Product used for unknown indication
     Dosage: 1 DOSAGE FORM, PER WEEK 20 CPS ZYRTEC INTERMIT, (VIGANTOL)
     Route: 065

REACTIONS (3)
  - Pain [Unknown]
  - Diarrhoea [Unknown]
  - Rash [Unknown]
